FAERS Safety Report 14305193 (Version 1)
Quarter: 2017Q4

REPORT INFORMATION
  Report Type: Spontaneous
  Country: US (occurrence: US)
  Receive Date: 20171219
  Receipt Date: 20171219
  Transmission Date: 20180321
  Serious: Yes (Other)
  Sender: FDA-Public Use
  Company Number: US-OTSUKA-16753758

PATIENT
  Age: 48 Year
  Sex: Female
  Weight: 76.19 kg

DRUGS (1)
  1. ABILIFY [Suspect]
     Active Substance: ARIPIPRAZOLE
     Indication: BIPOLAR DISORDER
     Dosage: SOTP DATE:15MAY12  RESTARTED:JUL12
     Route: 065

REACTIONS (3)
  - Bipolar I disorder [Unknown]
  - Blood urine present [Unknown]
  - Treatment noncompliance [Unknown]

NARRATIVE: CASE EVENT DATE: 201205
